FAERS Safety Report 8203352-X (Version None)
Quarter: 2012Q1

REPORT INFORMATION
  Report Type: 
  Country: None (occurrence: None)
  Receive Date: 20120312
  Receipt Date: 20120302
  Transmission Date: 20120608
  Serious: Yes (Hospitalization)
  Sender: FDA-Public Use
  Company Number: US-ASTRAZENECA-2010SE49482

PATIENT
  Age: 60 Year
  Sex: Female

DRUGS (12)
  1. SEROQUEL [Suspect]
     Indication: ANXIETY
     Route: 048
     Dates: end: 20101001
  2. ZOLOFT [Concomitant]
  3. SEROQUEL [Suspect]
     Indication: PANIC ATTACK
     Route: 048
     Dates: end: 20101001
  4. SEROQUEL [Suspect]
     Route: 048
  5. ACCOLATE [Concomitant]
  6. KLONOPIN [Concomitant]
  7. SEROQUEL [Suspect]
     Route: 048
  8. SEROQUEL [Suspect]
     Route: 048
     Dates: start: 20101001
  9. SEROQUEL [Suspect]
     Route: 048
  10. SEROQUEL [Suspect]
     Route: 048
     Dates: start: 20101001
  11. SEROQUEL [Suspect]
     Indication: AFFECTIVE DISORDER
     Route: 048
     Dates: end: 20101001
  12. SEROQUEL [Suspect]
     Route: 048
     Dates: start: 20101001

REACTIONS (3)
  - INSOMNIA [None]
  - SUICIDAL IDEATION [None]
  - PANIC REACTION [None]
